FAERS Safety Report 8916651 (Version 1)
Quarter: 2012Q4

REPORT INFORMATION
  Report Type: 
  Country: US (occurrence: US)
  Receive Date: 20121120
  Receipt Date: 20121120
  Transmission Date: 20130627
  Serious: Yes (Other)
  Sender: FDA-Public Use
  Company Number: US-VERTEX PHARMACEUTICAL INC.-2012-024774

PATIENT
  Age: 60 Year
  Sex: Female

DRUGS (6)
  1. INCIVEK [Suspect]
     Indication: HEPATITIS C
     Dosage: UNK
     Route: 048
     Dates: start: 20120803, end: 20121029
  2. INCIVEK [Suspect]
     Dosage: UNK
  3. RIBAVIRIN [Suspect]
     Indication: HEPATITIS C
     Dosage: UNK
     Dates: start: 20120803, end: 20121029
  4. RIBAVIRIN [Suspect]
     Dosage: UNK
     Dates: start: 20121109
  5. PEGASYS [Suspect]
     Indication: HEPATITIS C
     Dosage: UNK
     Dates: start: 20120803, end: 20121029
  6. PEGASYS [Suspect]
     Dosage: UNK
     Dates: start: 20121109

REACTIONS (3)
  - Drug reaction with eosinophilia and systemic symptoms [Unknown]
  - Influenza like illness [Recovered/Resolved]
  - Vomiting [Unknown]
